FAERS Safety Report 19742240 (Version 1)
Quarter: 2021Q3

REPORT INFORMATION
  Report Type: Report from Study
  Country: None (occurrence: US)
  Receive Date: 20210825
  Receipt Date: 20210825
  Transmission Date: 20211014
  Serious: Yes (Other)
  Sender: FDA-Public Use
  Company Number: US-ABBVIE-21K-163-4049274-00

PATIENT
  Sex: Male

DRUGS (1)
  1. IMBRUVICA [Suspect]
     Active Substance: IBRUTINIB
     Indication: CHRONIC LYMPHOCYTIC LEUKAEMIA
     Route: 048
     Dates: start: 20210730, end: 202108

REACTIONS (8)
  - Bladder disorder [Unknown]
  - Diarrhoea [Unknown]
  - Hepatic cancer [Unknown]
  - Renal disorder [Unknown]
  - Procedural complication [Unknown]
  - Fluid intake reduced [Unknown]
  - Renal disorder [Unknown]
  - Hypophagia [Unknown]

NARRATIVE: CASE EVENT DATE: 2021
